FAERS Safety Report 5305955-9 (Version None)
Quarter: 2007Q2

REPORT INFORMATION
  Report Type: 
  Country: None (occurrence: None)
  Receive Date: 20070424
  Receipt Date: 20070424
  Transmission Date: 20071010
  Serious: Yes (Other)
  Sender: FDA-Public Use
  Company Number: US-GENENTECH-232477

PATIENT
  Age: 85 Year
  Sex: Female

DRUGS (1)
  1. AVASTIN [Suspect]
     Indication: MACULAR DEGENERATION
     Dosage: UNK, UNK
     Dates: start: 20060101

REACTIONS (2)
  - DYSPNOEA [None]
  - PRODUCTIVE COUGH [None]
